FAERS Safety Report 16325692 (Version 1)
Quarter: 2019Q2

REPORT INFORMATION
  Report Type: Spontaneous
  Country: US (occurrence: US)
  Receive Date: 20190411
  Receipt Date: 20190411
  Transmission Date: 20190711
  Serious: No
  Sender: FDA-Public Use
  Company Number: None

PATIENT
  Age: 58 Year
  Sex: Female

DRUGS (1)
  1. CAPECITABINE TAB 150 MG [Suspect]
     Active Substance: CAPECITABINE
     Dosage: ?          START OF THERAPY 04/12/2019?

REACTIONS (2)
  - Colon operation [None]
  - Gastric operation [None]

NARRATIVE: CASE EVENT DATE: 20190411
